FAERS Safety Report 25661973 (Version 1)
Quarter: 2025Q3

REPORT INFORMATION
  Report Type: Spontaneous
  Country: US (occurrence: US)
  Receive Date: 20250809
  Receipt Date: 20250809
  Transmission Date: 20251021
  Serious: Yes (Other)
  Sender: AMGEN
  Company Number: US-AMGEN-USASP2025155334

PATIENT
  Age: 28 Year
  Sex: Female

DRUGS (5)
  1. TEPEZZA [Suspect]
     Active Substance: TEPROTUMUMAB-TRBW
     Indication: Endocrine ophthalmopathy
     Route: 040
     Dates: start: 202304
  2. TEPEZZA [Suspect]
     Active Substance: TEPROTUMUMAB-TRBW
     Route: 040
     Dates: start: 2023
  3. TEPEZZA [Suspect]
     Active Substance: TEPROTUMUMAB-TRBW
     Route: 040
     Dates: start: 20230916
  4. SYSTANE (HYPROMELLOSE 2910 (4000 MPA.S)) [Concomitant]
     Active Substance: HYPROMELLOSE 2910 (4000 MPA.S)
     Indication: Dry eye
     Route: 065
  5. LUMIFY [Concomitant]
     Active Substance: BRIMONIDINE TARTRATE
     Indication: Ocular hyperaemia
     Route: 065

REACTIONS (5)
  - Deafness permanent [Not Recovered/Not Resolved]
  - Dry skin [Unknown]
  - Muscle spasms [Unknown]
  - Fatigue [Unknown]
  - Tinnitus [Unknown]

NARRATIVE: CASE EVENT DATE: 20230101
